FAERS Safety Report 25156729 (Version 2)
Quarter: 2025Q2

REPORT INFORMATION
  Report Type: Spontaneous
  Country: US (occurrence: US)
  Receive Date: 20250403
  Receipt Date: 20250528
  Transmission Date: 20250717
  Serious: No
  Sender: SANOFI AVENTIS
  Company Number: US-SA-2025SA094799

PATIENT
  Age: 62 Year
  Sex: Female

DRUGS (9)
  1. DUPIXENT [Suspect]
     Active Substance: DUPILUMAB
     Indication: Asthma
     Dosage: 300 MG, QOW
     Route: 058
     Dates: start: 20250304
  2. DUPIXENT [Suspect]
     Active Substance: DUPILUMAB
     Indication: Chronic obstructive pulmonary disease
  3. OHTUVAYRE [Concomitant]
     Active Substance: ENSIFENTRINE
  4. YUPELRI [Concomitant]
     Active Substance: REVEFENACIN
  5. ALBUTEROL [Concomitant]
     Active Substance: ALBUTEROL
  6. PREDNISONE [Concomitant]
     Active Substance: PREDNISONE
  7. FASENRA [Concomitant]
     Active Substance: BENRALIZUMAB
  8. LINZESS [Concomitant]
     Active Substance: LINACLOTIDE
  9. XIFAXAN [Concomitant]
     Active Substance: RIFAXIMIN

REACTIONS (1)
  - Incorrect dose administered [Unknown]

NARRATIVE: CASE EVENT DATE: 20250304
